FAERS Safety Report 9624393 (Version 1)
Quarter: 2013Q4

REPORT INFORMATION
  Report Type: Spontaneous
  Country: US (occurrence: US)
  Receive Date: 20131015
  Receipt Date: 20131015
  Transmission Date: 20140711
  Serious: No
  Sender: FDA-Public Use
  Company Number: US-PFIZER INC-2013293102

PATIENT
  Age: 49 Year
  Sex: Female
  Weight: 74.83 kg

DRUGS (4)
  1. VENLAFAXINE HCL [Suspect]
     Indication: HOT FLUSH
     Dosage: 37.5 MG, 1X/DAY
     Route: 048
     Dates: start: 201306, end: 201307
  2. VENLAFAXINE HCL [Suspect]
     Dosage: 75 MG (BY TAKING TWO TABLETS OF 37.5MG), 1X/DAY
     Route: 048
     Dates: start: 201307
  3. PEPCID [Concomitant]
     Indication: GASTROOESOPHAGEAL REFLUX DISEASE
     Dosage: 40 MG, 1X/DAY
  4. ADVAIR DISKUS [Concomitant]
     Dosage: 100/50MG ONE PUFF, 1X/DAY

REACTIONS (5)
  - Anxiety [Not Recovered/Not Resolved]
  - Feeling jittery [Not Recovered/Not Resolved]
  - Hyperhidrosis [Not Recovered/Not Resolved]
  - Off label use [Unknown]
  - Drug ineffective for unapproved indication [Unknown]
